FAERS Safety Report 21351818 (Version 2)
Quarter: 2022Q4

REPORT INFORMATION
  Report Type: Spontaneous
  Country: US (occurrence: US)
  Receive Date: 20220919
  Receipt Date: 20221001
  Transmission Date: 20230113
  Serious: No
  Sender: FDA-Public Use
  Company Number: US-JNJFOC-20220911295

PATIENT
  Age: 37 Year
  Sex: Male

DRUGS (6)
  1. TREMFYA [Suspect]
     Active Substance: GUSELKUMAB
     Indication: Psoriasis
     Route: 058
  2. TREMFYA [Suspect]
     Active Substance: GUSELKUMAB
     Indication: Acne
  3. HYDROCHLOROTHIAZIDE [Concomitant]
     Active Substance: HYDROCHLOROTHIAZIDE
  4. IBUPROFEN [Concomitant]
     Active Substance: IBUPROFEN
  5. ASPIRIN [Concomitant]
     Active Substance: ASPIRIN
  6. VITAMIN D3 [Concomitant]
     Active Substance: CHOLECALCIFEROL

REACTIONS (4)
  - Product dose omission issue [Unknown]
  - Injection site haemorrhage [Unknown]
  - Product complaint [Unknown]
  - Needle issue [Unknown]

NARRATIVE: CASE EVENT DATE: 20220905
